FAERS Safety Report 5994127-0 (Version None)
Quarter: 2008Q4

REPORT INFORMATION
  Report Type: 
  Country: None (occurrence: None)
  Receive Date: 20081212
  Receipt Date: 20081118
  Transmission Date: 20090506
  Serious: Yes (Hospitalization)
  Sender: FDA-Public Use
  Company Number: DK-BRISTOL-MYERS SQUIBB COMPANY-14409916

PATIENT
  Age: 52 Year
  Sex: Female

DRUGS (3)
  1. ORENCIA [Suspect]
     Indication: RHEUMATOID ARTHRITIS
     Dosage: LATEST TREATMENT DATE 06-SEP-2008
     Dates: start: 20080724
  2. ENBREL [Concomitant]
     Dates: start: 20060510, end: 20080610
  3. PREDNISOLONE [Concomitant]
     Dosage: LATEST TREATMENT 25-AUG-2008
     Dates: start: 20060510

REACTIONS (4)
  - CHEST DISCOMFORT [None]
  - FEAR OF DEATH [None]
  - OROPHARYNGEAL PAIN [None]
  - PRESYNCOPE [None]
